FAERS Safety Report 10286034 (Version 1)
Quarter: 2014Q3

REPORT INFORMATION
  Report Type: Spontaneous
  Country: US (occurrence: None)
  Receive Date: 20140703
  Receipt Date: 20140703
  Transmission Date: 20150326
  Serious: Yes (Life-Threatening, Other)
  Sender: FDA-Public Use
  Company Number: None

PATIENT
  Age: 42 Year
  Sex: Female
  Weight: 77.11 kg

DRUGS (1)
  1. XEOMIN [Suspect]
     Active Substance: INCOBOTULINUMTOXINA
     Indication: SKIN COSMETIC PROCEDURE
     Dosage: 44 UNITS DONCE ONCE INTO THE MUSCLE
     Route: 030
     Dates: start: 20140423, end: 20140423

REACTIONS (13)
  - Vision blurred [None]
  - Local swelling [None]
  - Jaw disorder [None]
  - Muscle spasms [None]
  - Rash [None]
  - Chest pain [None]
  - Vomiting [None]
  - Swelling face [None]
  - Tremor [None]
  - Headache [None]
  - Extrasystoles [None]
  - Cough [None]
  - Dysphagia [None]

NARRATIVE: CASE EVENT DATE: 20140423
